FAERS Safety Report 20366758 (Version 2)
Quarter: 2023Q1

REPORT INFORMATION
  Report Type: Report from Study
  Country: US (occurrence: US)
  Receive Date: 20220123
  Receipt Date: 20230204
  Transmission Date: 20230418
  Serious: No
  Sender: FDA-Public Use
  Company Number: US-ACORDA-ACO_170742_2021

PATIENT
  Sex: Female
  Weight: 60.3 kg

DRUGS (22)
  1. DALFAMPRIDINE [Suspect]
     Active Substance: DALFAMPRIDINE
     Indication: Multiple sclerosis
     Dosage: 1 DOSAGE FORM, Q 12 HRS
     Route: 048
     Dates: start: 20210902, end: 20210925
  2. AMPYRA [Suspect]
     Active Substance: DALFAMPRIDINE
     Indication: Multiple sclerosis
     Dosage: 1 DOSAGE FORM, BID
     Route: 048
     Dates: start: 20170228
  3. ALPROZAM [Concomitant]
     Indication: Product used for unknown indication
     Dosage: 0.25 MILLIGRAM
     Route: 065
  4. CARISOPRODOL [Concomitant]
     Active Substance: CARISOPRODOL
     Indication: Product used for unknown indication
     Dosage: 350 MILLIGRAM
     Route: 065
  5. DULOXETINE [Concomitant]
     Active Substance: DULOXETINE
     Indication: Product used for unknown indication
     Dosage: 60 MILLIGRAM
     Route: 065
  6. GABAPENTIN [Concomitant]
     Active Substance: GABAPENTIN
     Indication: Product used for unknown indication
     Dosage: 800 MILLIGRAM
     Route: 065
  7. LISINOPRIL [Concomitant]
     Active Substance: LISINOPRIL
     Indication: Product used for unknown indication
     Dosage: 20 MILLIGRAM
     Route: 065
  8. LYRICA [Concomitant]
     Active Substance: PREGABALIN
     Indication: Product used for unknown indication
     Dosage: 75 MILLIGRAM, QD
     Route: 048
     Dates: start: 20170308
  9. MECLIZINE [Concomitant]
     Active Substance: MECLIZINE HYDROCHLORIDE
     Indication: Product used for unknown indication
     Dosage: 25 MILLIGRAM
     Route: 065
  10. NAPROXEN [Concomitant]
     Active Substance: NAPROXEN
     Indication: Product used for unknown indication
     Dosage: 500 MILLIGRAM
     Route: 065
  11. OSPHENA [Concomitant]
     Active Substance: OSPEMIFENE
     Indication: Product used for unknown indication
     Dosage: 60 MILLIGRAM
     Route: 065
  12. PROPRANOLOL [Concomitant]
     Active Substance: PROPRANOLOL HYDROCHLORIDE
     Indication: Product used for unknown indication
     Dosage: 20 MILLIGRAM
     Route: 065
  13. TOVIAZ [Concomitant]
     Active Substance: FESOTERODINE FUMARATE
     Indication: Product used for unknown indication
     Dosage: 8 MILLIGRAM
     Route: 065
  14. TRAZODONE [Concomitant]
     Active Substance: TRAZODONE HYDROCHLORIDE
     Indication: Product used for unknown indication
     Dosage: 50 MILLIGRAM
     Route: 065
  15. TYSABRI [Concomitant]
     Active Substance: NATALIZUMAB
     Indication: Product used for unknown indication
     Dosage: INJ 300/15 ML, EVERY FOUR WEEKS
     Route: 042
  16. CHOLECALCIFEROL [Concomitant]
     Active Substance: CHOLECALCIFEROL
     Indication: Product used for unknown indication
     Dosage: UNK
     Route: 065
  17. LINZESS [Concomitant]
     Active Substance: LINACLOTIDE
     Indication: Product used for unknown indication
     Dosage: 145 MICROGRAM, QD
     Route: 065
     Dates: start: 20161213
  18. CYMBALTA [Concomitant]
     Active Substance: DULOXETINE HYDROCHLORIDE
     Indication: Product used for unknown indication
     Dosage: 60 MILLIGRAM, QD, 2 ONCE A DAY
     Route: 065
     Dates: start: 20161213
  19. TESTOSTERONE [Concomitant]
     Active Substance: TESTOSTERONE
     Indication: Product used for unknown indication
     Dosage: 10 PERCENT, QD, AS DIRECTED
     Route: 065
     Dates: start: 20190911
  20. LIDODERM [Concomitant]
     Active Substance: LIDOCAINE
     Indication: Product used for unknown indication
     Dosage: 1 DOSAGE FORM, BID, APPLY 1 PATCH TO SKIN TWICE A DAY
     Route: 062
     Dates: start: 20220128
  21. BACLOFEN [Concomitant]
     Active Substance: BACLOFEN
     Indication: Product used for unknown indication
     Dosage: 1-2 DOSAGE FORM, BID
     Route: 048
     Dates: start: 20220321
  22. VYVANSE [Concomitant]
     Active Substance: LISDEXAMFETAMINE DIMESYLATE
     Indication: Product used for unknown indication
     Dosage: 20 MILLIGRAM, QD, 1/2-1 TABLET QD
     Route: 048

REACTIONS (6)
  - Weight decreased [Unknown]
  - Pain in extremity [Recovering/Resolving]
  - Cognitive disorder [Not Recovered/Not Resolved]
  - Adverse drug reaction [Unknown]
  - Fatigue [Not Recovered/Not Resolved]
  - Product dose omission issue [Unknown]
